FAERS Safety Report 6844374-0 (Version None)
Quarter: 2010Q2

REPORT INFORMATION
  Report Type: 
  Country: None (occurrence: None)
  Receive Date: 20100629
  Receipt Date: 20100308
  Transmission Date: 20101027
  Serious: Yes (Other)
  Sender: FDA-Public Use
  Company Number: US-WYE-H13941810

PATIENT
  Age: 51 Year
  Sex: Female
  Weight: 59.02 kg

DRUGS (5)
  1. PRISTIQ [Suspect]
     Indication: POST-TRAUMATIC STRESS DISORDER
     Dosage: ORAL
     Route: 048
     Dates: start: 20100201, end: 20100330
  2. LISINOPRIL [Concomitant]
  3. FLUTICASONE PROPIONATE [Concomitant]
  4. CALCIUM (CALCIUM) [Concomitant]
  5. MUCINEX [Concomitant]

REACTIONS (1)
  - NIGHT SWEATS [None]
